FAERS Safety Report 8832835 (Version 11)
Quarter: 2013Q1

REPORT INFORMATION
  Report Type: Spontaneous
  Country: US (occurrence: US)
  Receive Date: 20121010
  Receipt Date: 20130124
  Transmission Date: 20140127
  Serious: No
  Sender: FDA-Public Use
  Company Number: US-009507513-1210USA002764

PATIENT
  Age: 56 None
  Sex: Male

DRUGS (2)
  1. PEG-INTRON [Suspect]
     Indication: HEPATITIS C
     Dosage: UNK
     Route: 048
     Dates: start: 20120928
  2. RIBAVIRIN [Suspect]
     Indication: HEPATITIS C
     Dosage: UNK
     Route: 048
     Dates: start: 20120928

REACTIONS (40)
  - Eye haemorrhage [Unknown]
  - Eye disorder [Unknown]
  - Chromaturia [Unknown]
  - Chromaturia [Recovered/Resolved]
  - Injection site mass [Unknown]
  - Injection site bruising [Unknown]
  - Infusion site reaction [Unknown]
  - Contusion [Unknown]
  - Injection site bruising [Unknown]
  - Injection site erythema [Unknown]
  - Injection site erythema [Unknown]
  - Injection site erythema [Unknown]
  - Erythema [Unknown]
  - Ocular hyperaemia [Unknown]
  - Vomiting [Unknown]
  - Injection site erythema [Unknown]
  - Injection site oedema [Unknown]
  - Injection site urticaria [Unknown]
  - Anaemia [Unknown]
  - Injection site rash [Unknown]
  - Alopecia [Unknown]
  - Influenza like illness [Unknown]
  - Asthenia [Unknown]
  - Abdominal discomfort [Unknown]
  - Pruritus [Unknown]
  - Influenza like illness [Unknown]
  - Myalgia [Unknown]
  - Anxiety [Unknown]
  - Injection site reaction [Unknown]
  - Injection site reaction [Unknown]
  - Rash [Unknown]
  - Influenza like illness [Unknown]
  - Hyperhidrosis [Unknown]
  - Upper respiratory tract infection [Unknown]
  - Eye pain [Unknown]
  - Photophobia [Unknown]
  - Influenza like illness [Unknown]
  - Dysgeusia [Unknown]
  - Anaemia [Unknown]
  - Dyspnoea [Unknown]
